FAERS Safety Report 4344897-2 (Version None)
Quarter: 2004Q2

REPORT INFORMATION
  Report Type: 
  Country: None (occurrence: None)
  Receive Date: 20040420
  Receipt Date: 20040402
  Transmission Date: 20050107
  Serious: Yes (Hospitalization)
  Sender: FDA-Public Use
  Company Number: DSA_24187_2004

PATIENT
  Age: 31 Year
  Sex: Female

DRUGS (4)
  1. NIFEDIPINE [Suspect]
     Indication: PREMATURE LABOUR
     Dosage: 20 MG PO
     Route: 048
  2. NIFEDIPINE [Suspect]
     Indication: TOCOLYSIS
     Dosage: 20 MG PO
     Route: 048
  3. BETAMETHASONE [Concomitant]
  4. AMOXICILLIN [Concomitant]

REACTIONS (20)
  - ANION GAP INCREASED [None]
  - BLOOD UREA DECREASED [None]
  - CARDIAC DISORDER [None]
  - COMPLICATIONS OF MATERNAL EXPOSURE TO THERAPEUTIC DRUGS [None]
  - CYANOSIS [None]
  - ELECTROCARDIOGRAM Q WAVE ABNORMAL [None]
  - ELECTROCARDIOGRAM QRS COMPLEX ABNORMAL [None]
  - ELECTROCARDIOGRAM T WAVE INVERSION [None]
  - FIBRIN D DIMER INCREASED [None]
  - FLUID RETENTION [None]
  - HEART RATE INCREASED [None]
  - HYPOXIA [None]
  - METABOLIC ACIDOSIS [None]
  - MYOCARDIAL ISCHAEMIA [None]
  - OEDEMA PERIPHERAL [None]
  - RESPIRATORY ALKALOSIS [None]
  - RESPIRATORY DISTRESS [None]
  - URINE KETONE BODY PRESENT [None]
  - VASCULAR RESISTANCE SYSTEMIC INCREASED [None]
  - VENOUS PRESSURE JUGULAR INCREASED [None]
